FAERS Safety Report 11668688 (Version 1)
Quarter: 2015Q4

REPORT INFORMATION
  Report Type: Spontaneous
  Country: US (occurrence: US)
  Receive Date: 20151027
  Receipt Date: 20151027
  Transmission Date: 20160304
  Serious: No
  Sender: FDA-Public Use
  Company Number: US-ELI_LILLY_AND_COMPANY-US201004007820

PATIENT
  Sex: Female

DRUGS (2)
  1. FORTEO [Suspect]
     Active Substance: TERIPARATIDE
     Indication: OSTEOPOROSIS
     Dosage: 20 UG, DAILY (1/D)
     Dates: start: 2008, end: 2008
  2. FORTEO [Suspect]
     Active Substance: TERIPARATIDE
     Dosage: 20 UG, DAILY (1/D)
     Dates: start: 200910, end: 20100409

REACTIONS (9)
  - Osteoporosis [Not Recovered/Not Resolved]
  - Body height decreased [Unknown]
  - Hypercalcaemia [Unknown]
  - Facial bones fracture [Unknown]
  - Fall [Unknown]
  - Upper limb fracture [Recovered/Resolved]
  - Arthralgia [Unknown]
  - Bone pain [Unknown]
  - Fall [Unknown]

NARRATIVE: CASE EVENT DATE: 2008
